FAERS Safety Report 23681772 (Version 1)
Quarter: 2024Q1

REPORT INFORMATION
  Report Type: Spontaneous
  Country: US (occurrence: US)
  Receive Date: 20240328
  Receipt Date: 20240328
  Transmission Date: 20240409
  Serious: Yes (Other)
  Sender: FDA-Public Use
  Company Number: US-KOANAAP-SML-US-2024-00238

PATIENT
  Age: 82 Year
  Sex: Male

DRUGS (2)
  1. GEMCITABINE [Suspect]
     Active Substance: GEMCITABINE
     Indication: Bladder transitional cell carcinoma
     Dosage: STARTED 13 MONTHS AFTER INITIAL DIAGNOSIS AND COMPLETED 5 CYCLES OF GEMCITABINE/CARBOPLATIN TREATMEN
     Route: 065
  2. CARBOPLATIN [Suspect]
     Active Substance: CARBOPLATIN
     Indication: Bladder transitional cell carcinoma
     Dosage: STARTED 13 MONTHS AFTER INITIAL DIAGNOSIS AND COMPLETED 5 CYCLES OF GEMCITABINE/CARBOPLATIN TREATMEN
     Route: 065

REACTIONS (5)
  - Metastases to skin [Unknown]
  - Tumour embolism [Unknown]
  - Skin cancer [Unknown]
  - Skin disorder [Unknown]
  - Drug ineffective [Unknown]
